FAERS Safety Report 9990680 (Version 1)
Quarter: 2014Q1

REPORT INFORMATION
  Report Type: Spontaneous
  Country: US (occurrence: None)
  Receive Date: 20140307
  Receipt Date: 20140307
  Transmission Date: 20141002
  Serious: No
  Sender: FDA-Public Use
  Company Number: None

PATIENT
  Age: 59 Year
  Sex: Female
  Weight: 104.3 kg

DRUGS (1)
  1. ZANAMIVIR [Suspect]
     Route: 042

REACTIONS (3)
  - Rash [None]
  - Unevaluable event [None]
  - Liver function test abnormal [None]
